FAERS Safety Report 25433402 (Version 1)
Quarter: 2025Q2

REPORT INFORMATION
  Report Type: Spontaneous
  Country: US (occurrence: None)
  Receive Date: 20250612
  Receipt Date: 20250612
  Transmission Date: 20250716
  Serious: Yes (unspecified)
  Sender: FDA-CTU
  Company Number: None

PATIENT
  Age: 78 Year
  Sex: Female

DRUGS (1)
  1. ACTEMRA ACTPEN [Suspect]
     Active Substance: TOCILIZUMAB
     Indication: Rheumatoid arthritis
     Dosage: FREQUENCY : EVERY OTHER WEEK;?

REACTIONS (2)
  - Drug ineffective [None]
  - Therapy interrupted [None]
